FAERS Safety Report 18443534 (Version 2)
Quarter: 2021Q1

REPORT INFORMATION
  Report Type: Spontaneous
  Country: IT (occurrence: IT)
  Receive Date: 20201029
  Receipt Date: 20210212
  Transmission Date: 20210419
  Serious: Yes (Hospitalization, Other)
  Sender: FDA-Public Use
  Company Number: IT-TEVA-2020-IT-1842184

PATIENT
  Age: 59 Year
  Sex: Male

DRUGS (9)
  1. DOXORUBICIN [Suspect]
     Active Substance: DOXORUBICIN
     Indication: SALIVARY GLAND CANCER
     Dosage: RECEIVED 3 WEEKLY AS FIRST?LINE CHEMOTHERAPY, 6 CYCLES
     Route: 065
  2. CARBOPLATIN. [Suspect]
     Active Substance: CARBOPLATIN
     Indication: SALIVARY GLAND CANCER
     Dosage: RECEIVED AS SECOND?LINE CHEMOTHERAPY, 6 CYCLES
     Route: 065
  3. LEUPRORELIN ACETATE [Suspect]
     Active Substance: LEUPROLIDE ACETATE
     Indication: SALIVARY GLAND CANCER
     Route: 065
  4. CISPLATIN. [Suspect]
     Active Substance: CISPLATIN
     Indication: SALIVARY GLAND CANCER
     Dosage: RECEIVED 3 WEEKLY AS FIRST?LINE CHEMOTHERAPY, 6 CYCLES
     Route: 065
  5. TRASTUZUMAB. [Suspect]
     Active Substance: TRASTUZUMAB
     Indication: SALIVARY GLAND CANCER
     Dosage: RECEIVED 3 WEEKLY
     Route: 065
  6. PACLITAXEL. [Suspect]
     Active Substance: PACLITAXEL
     Indication: SALIVARY GLAND CANCER
     Dosage: RECEIVED AS SECOND?LINE CHEMOTHERAPY, 6 CYCLES
     Route: 065
  7. CYCLOPHOSPHAMIDE. [Suspect]
     Active Substance: CYCLOPHOSPHAMIDE
     Indication: SALIVARY GLAND CANCER
     Dosage: RECEIVED 3 WEEKLY AS FIRST?LINE CHEMOTHERAPY, 6 CYCLES
     Route: 065
  8. TRASTUZUMAB. [Suspect]
     Active Substance: TRASTUZUMAB
     Indication: SALIVARY GLAND CANCER
     Dosage: RECEIVED AS SECOND?LINE CHEMOTHERAPY, 6 CYCLES
     Route: 065
  9. TRASTUZUMAB. [Suspect]
     Active Substance: TRASTUZUMAB
     Indication: SALIVARY GLAND CANCER
     Dosage: AS LOADING DOSE, RECEIVED AS SECOND?LINE CHEMOTHERAPY, 6 CYCLES
     Route: 065

REACTIONS (7)
  - Anaemia [Unknown]
  - Ejection fraction decreased [Unknown]
  - Asthenia [Unknown]
  - Fatigue [Unknown]
  - Cardiac dysfunction [Unknown]
  - Leukopenia [Unknown]
  - Off label use [Unknown]

NARRATIVE: CASE EVENT DATE: 201912
